FAERS Safety Report 5594678-7 (Version None)
Quarter: 2008Q1

REPORT INFORMATION
  Report Type: 
  Country: None (occurrence: None)
  Receive Date: 20080115
  Receipt Date: 20080108
  Transmission Date: 20080703
  Serious: Yes (Congenital Anomaly)
  Sender: FDA-Public Use
  Company Number: B0502090A

PATIENT
  Sex: Male

DRUGS (8)
  1. LAMIVUDINE [Suspect]
     Indication: HIV INFECTION
     Dosage: TRANSPLACETARY
     Route: 064
  2. CO-TRIMOXAZOLE (FORMULATION UNKNOWN) (GENERIC) (SULFAMETHOXAZOLE/TRIME [Suspect]
     Indication: INFECTION PROPHYLAXIS
     Dosage: TRANSPLACENTARY
     Route: 064
  3. STAVUDINE [Suspect]
     Indication: HIV INFECTION
     Dosage: TRANSPLACENTARY
     Route: 064
  4. NEVIRAPINE [Suspect]
     Indication: HIV INFECTION
     Dosage: TRANSPLACENTARY
     Route: 064
  5. ISONIAZID [Suspect]
     Indication: TUBERCULOSIS
     Dosage: TRANSPLACENTARY
     Route: 064
  6. RIFAMPICIN [Suspect]
     Indication: TUBERCULOSIS
     Dosage: TRANSPLACENTARY
     Route: 064
  7. PYRAZINAMIDE [Suspect]
     Indication: TUBERCULOSIS
     Dosage: TRANSPLACENTARY
     Route: 064
  8. ETHAMBUTOL HYDROCHLORIDE [Suspect]
     Indication: TUBERCULOSIS
     Dosage: TRANSPLACENTARY
     Route: 064

REACTIONS (2)
  - DANDY-WALKER SYNDROME [None]
  - DRUG EXPOSURE DURING PREGNANCY [None]
